FAERS Safety Report 7443760-8 (Version None)
Quarter: 2011Q2

REPORT INFORMATION
  Report Type: 
  Country: None (occurrence: None)
  Receive Date: 20110428
  Receipt Date: 20100806
  Transmission Date: 20111010
  Serious: Yes (Hospitalization)
  Sender: FDA-Public Use
  Company Number: US-ELI_LILLY_AND_COMPANY-US201008001855

PATIENT
  Sex: Female

DRUGS (10)
  1. FORTEO [Suspect]
     Dosage: 20 UG, DAILY (1/D)
     Dates: start: 20100528
  2. FORTEO [Suspect]
     Dosage: 20 UG, DAILY (1/D)
  3. PROTONIX [Concomitant]
     Dosage: 40 MG, DAILY (1/D)
  4. THYROXINE [Concomitant]
     Dosage: 50 UG, DAILY (1/D)
  5. TRAMADOL HCL [Concomitant]
     Dosage: 50 MG, 2/D
  6. CALCIUM CARBONATE [Concomitant]
     Dosage: 500 MG, 2/D
  7. VITAMIN D [Concomitant]
     Dosage: 1000 MBQ, DAILY (1/D)
  8. ANESTHETICS [Concomitant]
  9. FORTEO [Suspect]
     Indication: OSTEOPOROSIS
     Dosage: 20 UG, DAILY (1/D)
     Route: 058
     Dates: start: 20100212, end: 20100409
  10. MECLIZINE [Concomitant]
     Dosage: 25 MG, AS NEEDED

REACTIONS (7)
  - NEPHROLITHIASIS [None]
  - VEIN DISORDER [None]
  - INJECTION SITE PAIN [None]
  - GASTROOESOPHAGEAL REFLUX DISEASE [None]
  - ANAESTHETIC COMPLICATION [None]
  - INJECTION SITE HAEMATOMA [None]
  - DIZZINESS [None]
